FAERS Safety Report 23566885 (Version 1)
Quarter: 2024Q1

REPORT INFORMATION
  Report Type: Spontaneous
  Country: US (occurrence: US)
  Receive Date: 20240226
  Receipt Date: 20240226
  Transmission Date: 20240410
  Serious: No
  Sender: FDA-Public Use
  Company Number: US-AMNEAL PHARMACEUTICALS-2023-AMRX-02670

PATIENT
  Age: 71 Year
  Sex: Female

DRUGS (2)
  1. RYTARY [Suspect]
     Active Substance: CARBIDOPA\LEVODOPA
     Indication: Product used for unknown indication
     Dosage: 1 CAPSULES (36.25/145MG), 3 /DAY
     Route: 048
  2. RYTARY [Suspect]
     Active Substance: CARBIDOPA\LEVODOPA
     Dosage: 1 CAPSULES (23.75-95 MG), 3 /DAY
     Route: 048

REACTIONS (9)
  - Disturbance in attention [Unknown]
  - Restlessness [Unknown]
  - Dysphagia [Unknown]
  - Hallucination [Unknown]
  - Headache [Unknown]
  - Insomnia [Unknown]
  - Dyskinesia [Unknown]
  - Nausea [Unknown]
  - Product use issue [Unknown]

NARRATIVE: CASE EVENT DATE: 20230731
